FAERS Safety Report 11691241 (Version 1)
Quarter: 2015Q4

REPORT INFORMATION
  Report Type: Spontaneous
  Country: US (occurrence: US)
  Receive Date: 20151102
  Receipt Date: 20151102
  Transmission Date: 20160304
  Serious: No
  Sender: FDA-Public Use
  Company Number: US-APOTEX-2014AP002189

PATIENT

DRUGS (5)
  1. HYOSCYAMINE. [Suspect]
     Active Substance: HYOSCYAMINE
     Indication: ULCER
     Dosage: UNK UNK, UNKNOWN
     Route: 065
     Dates: start: 20140316
  2. ALLOPURINOL TABLETS USP [Suspect]
     Active Substance: ALLOPURINOL
     Indication: BLOOD PRESSURE MEASUREMENT
     Dosage: UNK
     Route: 065
  3. ENALAPRIL MALEATE AND HYDROCHLOROTHIAZIDE [Suspect]
     Active Substance: ENALAPRIL MALEATE\HYDROCHLOROTHIAZIDE
     Indication: BLOOD PRESSURE MEASUREMENT
     Dosage: 2 TABLETS DAILY
     Route: 048
  4. HYOSCYAMINE. [Suspect]
     Active Substance: HYOSCYAMINE
     Indication: ABDOMINAL DISCOMFORT
  5. METOPROLOL [Suspect]
     Active Substance: METOPROLOL
     Indication: BLOOD PRESSURE MEASUREMENT
     Dosage: 100 MG, UNK
     Route: 065

REACTIONS (4)
  - Parosmia [Unknown]
  - Dry mouth [Not Recovered/Not Resolved]
  - Dyskinesia [Not Recovered/Not Resolved]
  - Product odour abnormal [Unknown]

NARRATIVE: CASE EVENT DATE: 20140317
